FAERS Safety Report 11086353 (Version 2)
Quarter: 2015Q3

REPORT INFORMATION
  Report Type: Report from Study
  Country: US (occurrence: US)
  Receive Date: 20150504
  Receipt Date: 20150921
  Transmission Date: 20151125
  Serious: Yes (Death, Other)
  Sender: FDA-Public Use
  Company Number: US-THROMBOGENICS NV-CLI-2015-1676

PATIENT
  Age: 69 Year
  Sex: Male

DRUGS (2)
  1. VICTOZA [Concomitant]
     Active Substance: LIRAGLUTIDE
     Indication: DIABETES MELLITUS
     Dosage: 18 MG, DAILY
     Route: 058
  2. JETREA [Suspect]
     Active Substance: OCRIPLASMIN
     Indication: VITREOUS ADHESIONS
     Dosage: 0.125 MG, ONE TIME DOSE
     Route: 031
     Dates: start: 20141027, end: 20141027

REACTIONS (6)
  - Death [Fatal]
  - Visual acuity reduced [Not Recovered/Not Resolved]
  - Retinal detachment [Recovered/Resolved]
  - Eye pain [Recovered/Resolved]
  - Photophobia [Recovered/Resolved]
  - Ocular discomfort [Recovered/Resolved]

NARRATIVE: CASE EVENT DATE: 20141027
